FAERS Safety Report 17035924 (Version 1)
Quarter: 2019Q4

REPORT INFORMATION
  Report Type: Spontaneous
  Country: US (occurrence: US)
  Receive Date: 20191114
  Receipt Date: 20191114
  Transmission Date: 20200122
  Serious: Yes (Disabling)
  Sender: FDA-Public Use
  Company Number: None

PATIENT
  Age: 63 Year
  Sex: Female
  Weight: 78.75 kg

DRUGS (2)
  1. CETAPHIL (AVOBENZONE\OCTOCRYLENE) [Suspect]
     Active Substance: AVOBENZONE\OCTOCRYLENE
     Indication: PROPHYLAXIS AGAINST SOLAR RADIATION
     Dosage: ?          OTHER STRENGTH:?;QUANTITY:1 TEASPOON(S);?
     Route: 061
     Dates: start: 20190301, end: 20190916
  2. CETAPHIL (AVOBENZONE\OCTOCRYLENE) [Suspect]
     Active Substance: AVOBENZONE\OCTOCRYLENE
     Indication: DRY SKIN PROPHYLAXIS
     Dosage: ?          OTHER STRENGTH:?;QUANTITY:1 TEASPOON(S);?
     Route: 061
     Dates: start: 20190301, end: 20190916

REACTIONS (5)
  - Eye burns [None]
  - Vision blurred [None]
  - Noninfective conjunctivitis [None]
  - Visual impairment [None]
  - Eye pain [None]

NARRATIVE: CASE EVENT DATE: 20190916
